FAERS Safety Report 6647470-6 (Version None)
Quarter: 2010Q1

REPORT INFORMATION
  Report Type: 
  Country: None (occurrence: None)
  Receive Date: 20100323
  Receipt Date: 20100323
  Transmission Date: 20100710
  Serious: Yes (Disabling)
  Sender: FDA-Public Use
  Company Number: None

PATIENT
  Age: 59 Year
  Sex: Female
  Weight: 61.2356 kg

DRUGS (2)
  1. ASMANEX TWISTHALER [Suspect]
     Indication: INFLAMMATION
     Dosage: 220 MCG BREATH TWICE DAILY (ORAL INHALATION)
     Route: 055
     Dates: start: 20091105, end: 20091205
  2. ASMANEX TWISTHALER [Suspect]
     Indication: LUNG DISORDER
     Dosage: 220 MCG BREATH TWICE DAILY (ORAL INHALATION)
     Route: 055
     Dates: start: 20091105, end: 20091205

REACTIONS (4)
  - ACTIVITIES OF DAILY LIVING IMPAIRED [None]
  - HERPES ZOSTER [None]
  - IMPAIRED DRIVING ABILITY [None]
  - JOINT SWELLING [None]
